FAERS Safety Report 9019702 (Version 2)
Quarter: 2013Q1

REPORT INFORMATION
  Report Type: Spontaneous
  Country: US (occurrence: US)
  Receive Date: 20130118
  Receipt Date: 20130219
  Transmission Date: 20140127
  Serious: Yes (Other)
  Sender: FDA-Public Use
  Company Number: PHEH2013US001597

PATIENT
  Age: 25 None
  Sex: Female
  Weight: 50.79 kg

DRUGS (2)
  1. GILENYA [Suspect]
     Indication: MULTIPLE SCLEROSIS
     Dosage: 0.5 MG, QD
     Route: 048
     Dates: start: 20130104
  2. YAZ [Concomitant]
     Indication: CONTRACEPTION
     Dosage: 3 MG OF DROSPIRENONE AND 0.02 MG OF ETHINYL ESTRADIOL
     Route: 048

REACTIONS (6)
  - Dysarthria [Recovering/Resolving]
  - Disorientation [Not Recovered/Not Resolved]
  - Back pain [Not Recovered/Not Resolved]
  - Dizziness [Recovering/Resolving]
  - Dysgraphia [Not Recovered/Not Resolved]
  - Blood pressure decreased [Unknown]
